FAERS Safety Report 23376359 (Version 1)
Quarter: 2024Q1

REPORT INFORMATION
  Report Type: Spontaneous
  Country: US (occurrence: None)
  Receive Date: 20240108
  Receipt Date: 20240108
  Transmission Date: 20240410
  Serious: Yes (Hospitalization, Other)
  Sender: FDA-Public Use
  Company Number: US-Emmaus Medical, Inc.-EMM202401-000002

PATIENT
  Age: 31 Year
  Sex: Female

DRUGS (1)
  1. ENDARI [Suspect]
     Active Substance: GLUTAMINE
     Indication: Sickle cell disease
     Dosage: 10 G
     Route: 048

REACTIONS (3)
  - COVID-19 [Unknown]
  - Pain [Not Recovered/Not Resolved]
  - Acute chest syndrome [Unknown]

NARRATIVE: CASE EVENT DATE: 20230201
